FAERS Safety Report 14922734 (Version 2)
Quarter: 2018Q2

REPORT INFORMATION
  Report Type: Spontaneous
  Country: RO (occurrence: RO)
  Receive Date: 20180522
  Receipt Date: 20180530
  Transmission Date: 20180711
  Serious: Yes (Other)
  Sender: FDA-Public Use
  Company Number: RO-TEVA-2018-RO-892401

PATIENT
  Sex: Female

DRUGS (8)
  1. FLUCONAZOLE. [Suspect]
     Active Substance: FLUCONAZOLE
     Route: 065
  2. PENTOXIFYLLIN [Concomitant]
     Active Substance: PENTOXIFYLLINE
  3. CEFTAZIDIM [Suspect]
     Active Substance: CEFTAZIDIME
     Route: 065
  4. VANCOMYCIN [Concomitant]
     Active Substance: VANCOMYCIN
  5. ALBUMINE [Concomitant]
     Active Substance: ALBUMIN HUMAN
  6. MEROPENEM. [Suspect]
     Active Substance: MEROPENEM
     Route: 065
  7. AMIKACINE [Concomitant]
     Active Substance: AMIKACIN
  8. COLISTIN [Concomitant]
     Active Substance: COLISTIN

REACTIONS (3)
  - Investigation abnormal [Unknown]
  - Hepatic function abnormal [Unknown]
  - Jaundice [Unknown]
